FAERS Safety Report 24251259 (Version 1)
Quarter: 2024Q3

REPORT INFORMATION
  Report Type: Spontaneous
  Country: US (occurrence: US)
  Receive Date: 20240826
  Receipt Date: 20240826
  Transmission Date: 20241016
  Serious: No
  Sender: Harrow Health
  Company Number: US-IMP-2024000298

PATIENT
  Sex: Female

DRUGS (2)
  1. FRESHKOTE PRESERVATIVE FREE LUBRICATING EYE DROPS [Suspect]
     Active Substance: POLYVINYL ALCOHOL\POVIDONE
     Indication: Dry eye
     Dosage: ONE TO TWO DROPS TO BOTH EYES TWICE A DAY??BOTTLE 1
     Route: 047
     Dates: end: 2024
  2. FRESHKOTE PRESERVATIVE FREE LUBRICATING EYE DROPS [Suspect]
     Active Substance: POLYVINYL ALCOHOL\POVIDONE
     Indication: Dry eye
     Dosage: ONE TO TWO DROPS TO BOTH EYES TWICE A DAY??BOTTLE 2
     Route: 047
     Dates: end: 2024

REACTIONS (1)
  - Drug ineffective [Unknown]
